FAERS Safety Report 23818382 (Version 1)
Quarter: 2024Q2

REPORT INFORMATION
  Report Type: Spontaneous
  Country: US (occurrence: US)
  Receive Date: 20240506
  Receipt Date: 20240506
  Transmission Date: 20240715
  Serious: No
  Sender: FDA-Public Use
  Company Number: US-PADAGIS-2024PAD00700

PATIENT

DRUGS (2)
  1. MOMETASONE FUROATE [Suspect]
     Active Substance: MOMETASONE FUROATE
     Indication: Actinic prurigo
     Dosage: UNK
     Route: 061
  2. TRIAMCINOLONE ACETONIDE [Suspect]
     Active Substance: TRIAMCINOLONE ACETONIDE
     Indication: Actinic prurigo
     Dosage: UNK
     Route: 061

REACTIONS (2)
  - Therapy partial responder [Unknown]
  - Product use in unapproved indication [Unknown]
